FAERS Safety Report 6585979-4 (Version None)
Quarter: 2010Q1

REPORT INFORMATION
  Report Type: 
  Country: None (occurrence: None)
  Receive Date: 20100217
  Receipt Date: 20100216
  Transmission Date: 20100710
  Serious: Yes (Hospitalization, Other)
  Sender: FDA-Public Use
  Company Number: US-ABBOTT-10P-163-0626338-00

PATIENT
  Sex: Male
  Weight: 88.076 kg

DRUGS (2)
  1. HUMIRA [Suspect]
     Indication: PSORIATIC ARTHROPATHY
     Dates: start: 20080201
  2. HUMIRA [Suspect]
     Dates: start: 20100215, end: 20100215

REACTIONS (6)
  - ILL-DEFINED DISORDER [None]
  - INFLUENZA LIKE ILLNESS [None]
  - LOCALISED INFECTION [None]
  - OEDEMA PERIPHERAL [None]
  - PYREXIA [None]
  - STAPHYLOCOCCAL INFECTION [None]
